FAERS Safety Report 5307792-8 (Version None)
Quarter: 2007Q1

REPORT INFORMATION
  Report Type: 
  Country: None (occurrence: None)
  Receive Date: 20070201
  Receipt Date: 20061205
  Transmission Date: 20070707
  Serious: No
  Sender: FDA-Public Use
  Company Number: 2006PV026433

PATIENT
  Age: 71 Year
  Sex: Female
  Weight: 73.9363 kg

DRUGS (5)
  1. BYETTA [Suspect]
     Indication: DIABETES MELLITUS NON-INSULIN-DEPENDENT
     Dosage: 5 MCG BID SC
     Route: 058
     Dates: start: 20061101
  2. METFORMIN HCL [Concomitant]
  3. KUTRASE [Concomitant]
  4. DICYCLOMINE HYDROCHLORIDE [Concomitant]
  5. ACIPHEX [Concomitant]

REACTIONS (3)
  - CHEST PAIN [None]
  - ERUCTATION [None]
  - NAUSEA [None]
